FAERS Safety Report 7217279-3 (Version None)
Quarter: 2011Q1

REPORT INFORMATION
  Report Type: 
  Country: None (occurrence: None)
  Receive Date: 20110110
  Receipt Date: 20110106
  Transmission Date: 20110831
  Serious: Yes (Life-Threatening)
  Sender: FDA-Public Use
  Company Number: DE-SANOFI-AVENTIS-2010SA072261

PATIENT
  Age: 84 Year
  Sex: Female
  Weight: 56 kg

DRUGS (4)
  1. RAMIPRIL [Concomitant]
     Indication: HYPERTENSION
     Route: 048
  2. MULTAQ [Suspect]
     Dosage: 400 MG 1-0-1 (MORGENS U. ABENDS MIT DER MAHLZEIT)
     Route: 048
     Dates: start: 20101118, end: 20101123
  3. SIMVASTATIN [Concomitant]
     Route: 048
  4. BISOPROLOL [Concomitant]
     Indication: ATRIAL FIBRILLATION
     Dosage: DOSAGE: 1/2 TABLET DAILY.
     Route: 048

REACTIONS (3)
  - ELECTROCARDIOGRAM CHANGE [None]
  - TORSADE DE POINTES [None]
  - ARRHYTHMIA [None]
